FAERS Safety Report 7833079-5 (Version None)
Quarter: 2011Q4

REPORT INFORMATION
  Report Type: 
  Country: None (occurrence: None)
  Receive Date: 20111024
  Receipt Date: 20091029
  Transmission Date: 20120403
  Serious: Yes (Life-Threatening, Hospitalization)
  Sender: FDA-Public Use
  Company Number: DE-RANBAXY-2009US-47259

PATIENT

DRUGS (10)
  1. ZINACEF [Concomitant]
     Indication: PYREXIA
     Dosage: 1500 MG, TID
     Route: 030
     Dates: start: 20080428, end: 20080430
  2. PANTOPRAZOLE SODIUM [Suspect]
     Indication: ABDOMINAL PAIN
     Dosage: 40MG, OD
     Route: 048
     Dates: start: 20080428, end: 20080507
  3. B-COMBIN ^DAK^ [Concomitant]
     Indication: HYPOVITAMINOSIS
     Dosage: 3 IN 1 D
     Route: 065
  4. ZINACEF [Concomitant]
     Dosage: 750 MG, TID
     Route: 030
     Dates: start: 20080430, end: 20080510
  5. THIAMINE HCL [Concomitant]
     Indication: HYPOVITAMINOSIS
     Dosage: 300 MG, QD
     Route: 048
     Dates: start: 20080428
  6. PANTOPRAZOLE SODIUM [Suspect]
     Dosage: 40 MG, QD
     Route: 048
     Dates: start: 20080527, end: 20080530
  7. MEROPENEM [Suspect]
     Indication: PYREXIA
     Dosage: 1000 MG, TID
     Route: 042
     Dates: start: 20080511, end: 20080516
  8. LANSOPRAZOLE [Suspect]
     Indication: GASTRIC ULCER
     Dosage: 30 MG, BID
     Route: 048
     Dates: start: 20080507, end: 20080523
  9. CIPROFLOXACIN [Suspect]
     Indication: PYREXIA
     Dosage: 400 MG, BID
     Route: 065
     Dates: start: 20080430, end: 20080503
  10. FLUCONAZOLE [Suspect]
     Indication: PYREXIA
     Dosage: 200 MG, UNK
     Route: 065
     Dates: start: 20080429, end: 20080519

REACTIONS (4)
  - PAIN IN EXTREMITY [None]
  - TREMOR [None]
  - PARAESTHESIA [None]
  - TOXIC EPIDERMAL NECROLYSIS [None]
